FAERS Safety Report 19779583 (Version 1)
Quarter: 2021Q3

REPORT INFORMATION
  Report Type: Other
  Country: BE (occurrence: BE)
  Receive Date: 20210902
  Receipt Date: 20210902
  Transmission Date: 20211014
  Serious: Yes (Hospitalization, Other)
  Sender: FDA-Public Use
  Company Number: BE-ALCAMI_CORPORATION-USA-POI0581202100003

PATIENT
  Age: 68 Year
  Sex: Female

DRUGS (2)
  1. AZASAN [Suspect]
     Active Substance: AZATHIOPRINE
     Indication: CROHN^S DISEASE
     Route: 048
     Dates: start: 1997, end: 2019
  2. UNSPECIFIED ANTICOAGULANTS [Concomitant]
     Active Substance: UNSPECIFIED INGREDIENT
     Indication: DEEP VEIN THROMBOSIS

REACTIONS (1)
  - Angiocentric lymphoma [Recovering/Resolving]

NARRATIVE: CASE EVENT DATE: 2019
